FAERS Safety Report 10265835 (Version 1)
Quarter: 2014Q2

REPORT INFORMATION
  Report Type: Spontaneous
  Country: US (occurrence: US)
  Receive Date: 20140627
  Receipt Date: 20140627
  Transmission Date: 20141212
  Serious: No
  Sender: FDA-Public Use
  Company Number: US-AMGEN-USASP2014046647

PATIENT
  Age: 30 Year
  Sex: Male
  Weight: 89.34 kg

DRUGS (5)
  1. ENBREL [Suspect]
     Indication: ANKYLOSING SPONDYLITIS
     Dosage: 25 MG, 2 TIMES/WK
     Route: 058
     Dates: start: 2012
  2. VITAMIN C                          /00008001/ [Concomitant]
     Dosage: UNK
  3. TYLENOL                            /00020001/ [Concomitant]
     Dosage: UNK
  4. ADVIL                              /00109201/ [Concomitant]
     Indication: NASOPHARYNGITIS
     Dosage: UNK
  5. ADVIL                              /00109201/ [Concomitant]
     Indication: SINUS DISORDER

REACTIONS (2)
  - Nasopharyngitis [Recovering/Resolving]
  - Injection site pain [Unknown]
